FAERS Safety Report 5498638-6 (Version None)
Quarter: 2007Q4

REPORT INFORMATION
  Report Type: 
  Country: None (occurrence: None)
  Receive Date: 20071026
  Receipt Date: 20071016
  Transmission Date: 20080405
  Serious: Yes (Other)
  Sender: FDA-Public Use
  Company Number: DE-WYE-G00475107

PATIENT
  Sex: Female
  Weight: 73 kg

DRUGS (3)
  1. VENLAFAXINE HCL [Suspect]
     Indication: DEPRESSION
     Dosage: 75 MG PER DAY
     Route: 048
     Dates: end: 20070101
  2. VENLAFAXINE HCL [Suspect]
     Dosage: 225 MG PER DAY
     Route: 048
     Dates: start: 20070401
  3. ZOLPIDEM TARTRATE [Concomitant]
     Dosage: 5 MG PER DAY
     Route: 048
     Dates: start: 20070301, end: 20070501

REACTIONS (3)
  - DRUG EXPOSURE DURING PREGNANCY [None]
  - POLYHYDRAMNIOS [None]
  - PREMATURE RUPTURE OF MEMBRANES [None]
